FAERS Safety Report 4407376-X (Version None)
Quarter: 2004Q3

REPORT INFORMATION
  Report Type: 
  Country: None (occurrence: None)
  Receive Date: 20040721
  Receipt Date: 20040630
  Transmission Date: 20050211
  Serious: Yes (Hospitalization)
  Sender: FDA-Public Use
  Company Number: ATO-04-0630(0)

PATIENT
  Age: 55 Year
  Sex: Female
  Weight: 75.7 kg

DRUGS (7)
  1. TRISENOX [Suspect]
     Indication: MYELODYSPLASTIC SYNDROME
     Dosage: 18 MG (0.25 MG/KG,5X/WK IVI
     Route: 042
     Dates: start: 20040621, end: 20040625
  2. FILGRASTIM [Suspect]
  3. PROCRIT [Suspect]
  4. ASCORBIC ACID [Suspect]
  5. VITAMIN B6 [Concomitant]
  6. VITAMIN B-12 [Concomitant]
  7. METOPROLOL [Concomitant]

REACTIONS (9)
  - ABDOMINAL DISTENSION [None]
  - BLOOD IRON INCREASED [None]
  - CARDIOMEGALY [None]
  - DIARRHOEA [None]
  - ELECTROCARDIOGRAM ABNORMAL [None]
  - EMPHYSEMA [None]
  - LIVER DISORDER [None]
  - LOBAR PNEUMONIA [None]
  - PERICARDIAL EFFUSION [None]
